FAERS Safety Report 8101733-6 (Version None)
Quarter: 2012Q1

REPORT INFORMATION
  Report Type: 
  Country: None (occurrence: None)
  Receive Date: 20120131
  Receipt Date: 20120123
  Transmission Date: 20120608
  Serious: Yes (Disabling, Other)
  Sender: FDA-Public Use
  Company Number: PHHY2012SE001915

PATIENT
  Age: 70 Year
  Sex: Female

DRUGS (3)
  1. EXELON [Suspect]
     Indication: MEMORY IMPAIRMENT
     Dosage: 9.5MG/24 HOURS
     Route: 062
     Dates: end: 20120110
  2. OXAZEPAM [Concomitant]
     Indication: ANXIETY
  3. MIRTAZAPINE [Concomitant]
     Indication: DEPRESSION

REACTIONS (5)
  - FATIGUE [None]
  - DYSGRAPHIA [None]
  - MOVEMENT DISORDER [None]
  - TREMOR [None]
  - ASTHENIA [None]
